FAERS Safety Report 18061832 (Version 2)
Quarter: 2020Q3

REPORT INFORMATION
  Report Type: Report from Study
  Country: DE (occurrence: DE)
  Receive Date: 20200723
  Receipt Date: 20200806
  Transmission Date: 20201103
  Serious: Yes (Hospitalization, Other)
  Sender: FDA-Public Use
  Company Number: DE-BRISTOL-MYERS SQUIBB COMPANY-BMS-2020-056227

PATIENT
  Age: 66 Year
  Sex: Female
  Weight: 67 kg

DRUGS (28)
  1. TORASEMID [Concomitant]
     Active Substance: TORSEMIDE
     Dosage: 20 MILLIGRAM (1?0?0)
     Route: 048
     Dates: start: 20200717
  2. CANDESARTAN. [Concomitant]
     Active Substance: CANDESARTAN
     Indication: HYPERTENSION
     Dosage: 4 MILLIGRAM (1?0?1)
     Route: 048
     Dates: start: 20200710, end: 20200713
  3. DEXAMETHASONE. [Suspect]
     Active Substance: DEXAMETHASONE
     Indication: PLASMA CELL MYELOMA
     Dosage: 8 MILLIGRAM
     Route: 042
     Dates: start: 20200511, end: 20200616
  4. PANTOZOL [Concomitant]
     Active Substance: PANTOPRAZOLE SODIUM
     Indication: PROPHYLAXIS
     Dosage: 40 MILLIGRAM, QD (1?0?0)
     Route: 048
     Dates: start: 20200512
  5. FOLSAURE SANAVITA [Concomitant]
     Indication: PROPHYLAXIS
     Dosage: 5 MILLIGRAM (1?0?0)
     Route: 048
     Dates: start: 20200615
  6. DEXAMETHASONE. [Concomitant]
     Active Substance: DEXAMETHASONE
     Indication: PROPHYLAXIS
     Dosage: 4 MILLIGRAM
     Route: 048
     Dates: start: 20200710, end: 20200713
  7. ELOTUZUMAB. [Suspect]
     Active Substance: ELOTUZUMAB
     Indication: PLASMA CELL MYELOMA
     Dosage: 660 MILLIGRAM
     Route: 042
     Dates: start: 20200511, end: 20200616
  8. CARFILZOMIB [Suspect]
     Active Substance: CARFILZOMIB
     Indication: PLASMA CELL MYELOMA
     Dosage: 34 MILLIGRAM
     Route: 042
     Dates: start: 20200511
  9. CALCITRIOL. [Concomitant]
     Active Substance: CALCITRIOL
     Indication: PROPHYLAXIS
     Dosage: 0.5 MILLIGRAM (0?0?1)
     Route: 048
  10. DEXAMETHASONE. [Concomitant]
     Active Substance: DEXAMETHASONE
     Dosage: 2 MILLIGRAM (1?0?0)
     Route: 048
     Dates: start: 20200714
  11. LANTUS [Concomitant]
     Active Substance: INSULIN GLARGINE
     Indication: DIABETES MELLITUS
     Dosage: UNK
     Route: 058
     Dates: start: 20200711
  12. DOXAZOSIN [Concomitant]
     Active Substance: DOXAZOSIN MESYLATE
     Dosage: 4 MILLIGRAM (2?0?1)
     Route: 048
     Dates: start: 20200715
  13. LENALIDOMIDE [Suspect]
     Active Substance: LENALIDOMIDE
     Indication: PLASMA CELL MYELOMA
     Dosage: 25 MILLIGRAM
     Route: 048
     Dates: start: 20200511, end: 20200616
  14. METOPROLOL. [Concomitant]
     Active Substance: METOPROLOL
     Indication: HYPERTENSION
     Dosage: 95 MILLIGRAM(1?0?1)
     Route: 048
     Dates: start: 20200710
  15. CALCIUM [Concomitant]
     Active Substance: CALCIUM
     Indication: PROPHYLAXIS
     Dosage: 500 MILLIGRAM (1?0?1)
     Route: 048
     Dates: start: 20200710
  16. SITAGLIPTIN [Concomitant]
     Active Substance: SITAGLIPTIN
     Indication: TYPE 2 DIABETES MELLITUS
     Dosage: 25 MILLIGRAM (1?0?0)
     Route: 048
     Dates: start: 20200715
  17. COTRIM FORTE [Concomitant]
     Active Substance: SULFAMETHOXAZOLE\TRIMETHOPRIM
     Indication: PROPHYLAXIS
     Dosage: 10 MILLIGRAM (1?0?0)
     Route: 048
     Dates: start: 20200703
  18. TORASEMID [Concomitant]
     Active Substance: TORSEMIDE
     Indication: PROPHYLAXIS
     Dosage: 10 MILLIGRAM (1?0?0)
     Route: 048
     Dates: start: 20190707, end: 20190709
  19. KALINOR [POTASSIUM CHLORIDE] [Concomitant]
     Active Substance: POTASSIUM CHLORIDE
     Indication: PROPHYLAXIS
     Dosage: 600 MILLIGRAM (1?0?1)
     Route: 048
     Dates: start: 20200716, end: 20200716
  20. HUMALOG [Concomitant]
     Active Substance: INSULIN LISPRO
     Indication: DIABETES MELLITUS
     Dosage: UNK, PRN DOSE: ACCORDING TO PLAN
     Route: 058
     Dates: start: 20200711
  21. CARFILZOMIB [Suspect]
     Active Substance: CARFILZOMIB
     Dosage: 61 MILLIGRAM
     Route: 042
     Dates: end: 20200616
  22. DEXAMETHASONE. [Suspect]
     Active Substance: DEXAMETHASONE
     Indication: PLASMA CELL MYELOMA
     Dosage: 28 MILLIGRAM
     Route: 048
     Dates: start: 20200511, end: 20200616
  23. AMLODIPINE [Concomitant]
     Active Substance: AMLODIPINE BESYLATE
     Indication: HYPERTENSION
     Dosage: 5 MILLIGRAM (1?0?1)
     Route: 048
     Dates: start: 20200710
  24. DOXAZOSIN [Concomitant]
     Active Substance: DOXAZOSIN MESYLATE
     Indication: HYPERTENSION
     Dosage: 4 MILLIGRAM (1?0?1)
     Route: 048
     Dates: start: 20200629, end: 20200714
  25. CANDESARTAN. [Concomitant]
     Active Substance: CANDESARTAN
     Dosage: 8 MILLIGRAM (1?0?1)
     Route: 048
     Dates: start: 20200714
  26. HEPARIN [Concomitant]
     Active Substance: HEPARIN SODIUM
     Indication: PROPHYLAXIS
     Dosage: 5000 INTERNATIONAL UNIT (1?0?1)
     Route: 058
     Dates: start: 20200710, end: 20200712
  27. CHOLECALCIFEROL [Concomitant]
     Active Substance: CHOLECALCIFEROL
     Indication: PROPHYLAXIS
     Dosage: 1000 INTERNATIONAL UNIT (1?0?0)
     Route: 048
     Dates: start: 20200512
  28. HEPARIN [Concomitant]
     Active Substance: HEPARIN SODIUM
     Dosage: 5000 INTERNATIONAL UNIT (1?0?1)
     Route: 058
     Dates: start: 20200714, end: 20200716

REACTIONS (1)
  - Cardiac failure [Recovered/Resolved]

NARRATIVE: CASE EVENT DATE: 20200710
